FAERS Safety Report 7977546-2 (Version None)
Quarter: 2011Q4

REPORT INFORMATION
  Report Type: 
  Country: None (occurrence: None)
  Receive Date: 20111214
  Receipt Date: 20111121
  Transmission Date: 20120403
  Serious: No
  Sender: FDA-Public Use
  Company Number: US-AMGEN-USASP2011061789

PATIENT
  Age: 61 Year
  Sex: Female

DRUGS (1)
  1. ENBREL [Suspect]
     Indication: RHEUMATOID ARTHRITIS
     Dosage: 50 MG, QWK
     Dates: start: 20110726, end: 20111101

REACTIONS (6)
  - OCULAR HYPERAEMIA [None]
  - EYE SWELLING [None]
  - EYE PRURITUS [None]
  - RHEUMATOID ARTHRITIS [None]
  - REFLEXES ABNORMAL [None]
  - CHEST DISCOMFORT [None]
